FAERS Safety Report 12520432 (Version 1)
Quarter: 2016Q2

REPORT INFORMATION
  Report Type: Spontaneous
  Country: US (occurrence: None)
  Receive Date: 20160630
  Receipt Date: 20160630
  Transmission Date: 20160815
  Serious: Yes (Death, Life-Threatening, Hospitalization)
  Sender: FDA-Public Use
  Company Number: None

PATIENT
  Age: 60 Year
  Sex: Female
  Weight: 111.59 kg

DRUGS (17)
  1. MORPHINE ER, 15 MG [Suspect]
     Active Substance: MORPHINE SULFATE
     Indication: GALLBLADDER CANCER
     Route: 048
     Dates: start: 20160614, end: 20160620
  2. TRAVATAN [Concomitant]
     Active Substance: TRAVOPROST
  3. ACETAMINOPHEN-OXYCODONE [Concomitant]
  4. PROPRANOLOL [Concomitant]
     Active Substance: PROPRANOLOL\PROPRANOLOL HYDROCHLORIDE
  5. SUCRALFATE. [Concomitant]
     Active Substance: SUCRALFATE
  6. MORPHINE ER, 15 MG [Suspect]
     Active Substance: MORPHINE SULFATE
     Indication: ABDOMINAL PAIN
     Route: 048
     Dates: start: 20160614, end: 20160620
  7. OXYCODONE/ACETAMINOPHEN 5-325MG, 5325 MG [Suspect]
     Active Substance: ACETAMINOPHEN\OXYCODONE HYDROCHLORIDE
     Indication: ABDOMINAL PAIN
     Route: 048
     Dates: start: 20160612, end: 20160620
  8. FLUOXETINE [Concomitant]
     Active Substance: FLUOXETINE HYDROCHLORIDE
  9. RISPERIDONE. [Concomitant]
     Active Substance: RISPERIDONE
  10. DOCUSATE SODIUM. [Concomitant]
     Active Substance: DOCUSATE SODIUM
  11. HYDROXYZINE LAMINATE [Concomitant]
  12. PROCHLORPERAZINE. [Concomitant]
     Active Substance: PROCHLORPERAZINE
  13. MORPHINE [Concomitant]
     Active Substance: MORPHINE
  14. OXYGEN. [Concomitant]
     Active Substance: OXYGEN
  15. OXYCODONE/ACETAMINOPHEN 5-325MG, 5325 MG [Suspect]
     Active Substance: ACETAMINOPHEN\OXYCODONE HYDROCHLORIDE
     Indication: GALLBLADDER CANCER
     Route: 048
     Dates: start: 20160612, end: 20160620
  16. ALBUTEROL. [Concomitant]
     Active Substance: ALBUTEROL
  17. OMEPRAZOLE. [Concomitant]
     Active Substance: OMEPRAZOLE

REACTIONS (15)
  - Fatigue [None]
  - Tremor [None]
  - Discomfort [None]
  - Blood pressure abnormal [None]
  - Dehydration [None]
  - Sepsis [None]
  - Renal failure [None]
  - Gastric disorder [None]
  - Confusional state [None]
  - Dyspnoea [None]
  - Toxicity to various agents [None]
  - Therapy naive [None]
  - Hyperhidrosis [None]
  - Drug interaction [None]
  - Oxygen saturation decreased [None]
